FAERS Safety Report 9657326 (Version 2)
Quarter: 2013Q4

REPORT INFORMATION
  Report Type: Spontaneous
  Country: US (occurrence: US)
  Receive Date: 20131030
  Receipt Date: 20131122
  Transmission Date: 20140711
  Serious: Yes (Hospitalization, Other)
  Sender: FDA-Public Use
  Company Number: US-GLAXOSMITHKLINE-A1047429A

PATIENT
  Sex: Female

DRUGS (4)
  1. FLOLAN [Suspect]
     Indication: PULMONARY ARTERIAL HYPERTENSION
     Dosage: 28.5NGKM CONTINUOUS
     Route: 042
     Dates: start: 20101228
  2. WARFARIN [Concomitant]
  3. LASIX [Concomitant]
  4. REVATIO [Concomitant]

REACTIONS (2)
  - Oedema [Recovered/Resolved]
  - Blood sodium increased [Recovered/Resolved]
